FAERS Safety Report 7461869-X (Version None)
Quarter: 2011Q2

REPORT INFORMATION
  Report Type: 
  Country: None (occurrence: None)
  Receive Date: 20110506
  Receipt Date: 20100913
  Transmission Date: 20111010
  Serious: No
  Sender: FDA-Public Use
  Company Number: US-BAYER-201036294NA

PATIENT
  Age: 43 Year
  Sex: Female

DRUGS (2)
  1. BENADRYL [Concomitant]
     Indication: PULMONARY CONGESTION
  2. YAZ [Suspect]
     Indication: CONTRACEPTION
     Dosage: UNK
     Route: 048
     Dates: start: 20060101

REACTIONS (1)
  - METRORRHAGIA [None]
